FAERS Safety Report 9998270 (Version 3)
Quarter: 2014Q2

REPORT INFORMATION
  Report Type: Spontaneous
  Country: IT (occurrence: IT)
  Receive Date: 20140312
  Receipt Date: 20140626
  Transmission Date: 20141212
  Serious: Yes (Hospitalization)
  Sender: FDA-Public Use
  Company Number: IT-ROCHE-1362736

PATIENT
  Age: 62 Year
  Sex: Female
  Weight: 121 kg

DRUGS (5)
  1. PEGASYS [Suspect]
     Indication: CHRONIC HEPATITIS C
     Route: 058
     Dates: start: 20140109, end: 20140227
  2. REBETOL [Suspect]
     Indication: CHRONIC HEPATITIS C
     Route: 048
     Dates: start: 20140109, end: 20140227
  3. VICTRELIS [Suspect]
     Indication: CHRONIC HEPATITIS C
     Route: 042
     Dates: start: 20140206, end: 20140227
  4. QUETIAPINA [Concomitant]
     Indication: DEPRESSION
     Route: 048
  5. EUTIROX [Concomitant]
     Indication: HYPOTHYROIDISM
     Route: 048

REACTIONS (3)
  - Cardiac failure [Recovered/Resolved]
  - Dyspnoea exertional [Recovered/Resolved]
  - Gravitational oedema [Recovered/Resolved]
